FAERS Safety Report 5501514-3 (Version None)
Quarter: 2007Q4

REPORT INFORMATION
  Report Type: 
  Country: None (occurrence: None)
  Receive Date: 20071026
  Receipt Date: 20071022
  Transmission Date: 20080405
  Serious: Yes (Death, Hospitalization)
  Sender: FDA-Public Use
  Company Number: 6038920

PATIENT
  Age: 76 Year
  Sex: Female

DRUGS (8)
  1. CARDENSIEL (2, 5 MG, TABLET) (BISOPROLOL FUMARATE) [Suspect]
     Indication: DRUG USE FOR UNKNOWN INDICATION
     Dosage: ORAL
     Route: 048
     Dates: end: 20070205
  2. COUMADIN [Suspect]
     Indication: DRUG USE FOR UNKNOWN INDICATION
     Dosage: 2 MG (2 MG, 1 D) ORAL; 1 MG (1 MG, 1 D) ORAL;  2 MG (2 MG, 1 D) ORAL
     Route: 048
     Dates: start: 20061222, end: 20061225
  3. COUMADIN [Suspect]
     Indication: DRUG USE FOR UNKNOWN INDICATION
     Dosage: 2 MG (2 MG, 1 D) ORAL; 1 MG (1 MG, 1 D) ORAL;  2 MG (2 MG, 1 D) ORAL
     Route: 048
     Dates: start: 20061225, end: 20070103
  4. COUMADIN [Suspect]
     Indication: DRUG USE FOR UNKNOWN INDICATION
     Dosage: 2 MG (2 MG, 1 D) ORAL; 1 MG (1 MG, 1 D) ORAL;  2 MG (2 MG, 1 D) ORAL
     Route: 048
     Dates: start: 20070103, end: 20070130
  5. LIPANTHYL (CAPSULE) (FENOFIBRATE) [Suspect]
     Indication: DRUG USE FOR UNKNOWN INDICATION
     Dosage: ORAL
     Route: 048
     Dates: end: 20070205
  6. ZOLPIDEM [Suspect]
     Indication: DRUG USE FOR UNKNOWN INDICATION
     Dosage: ORAL
     Route: 048
     Dates: end: 20070205
  7. COLCHICINE (TABLET) (COLCHICINE) [Suspect]
     Indication: DRUG USE FOR UNKNOWN INDICATION
     Dosage: ORAL
     Route: 048
     Dates: end: 20070205
  8. TRAMADOL HCL [Suspect]
     Indication: DRUG USE FOR UNKNOWN INDICATION
     Dosage: ORAL
     Route: 048
     Dates: end: 20070205

REACTIONS (5)
  - FALL [None]
  - HAEMATEMESIS [None]
  - INTERNATIONAL NORMALISED RATIO INCREASED [None]
  - OVERDOSE [None]
  - ULCER [None]
